FAERS Safety Report 23502954 (Version 1)
Quarter: 2024Q1

REPORT INFORMATION
  Report Type: Spontaneous
  Country: US (occurrence: US)
  Receive Date: 20240208
  Receipt Date: 20240208
  Transmission Date: 20240410
  Serious: No
  Sender: FDA-Public Use
  Company Number: US-INTRA-CELLULAR THERAPIES, INC.-2023ICT01291

PATIENT
  Sex: Female
  Weight: 77.098 kg

DRUGS (5)
  1. CAPLYTA [Suspect]
     Active Substance: LUMATEPERONE
     Indication: Bipolar I disorder
     Dosage: 42 MG (1 CAPSULE), 1X/DAY
     Route: 048
     Dates: start: 202304
  2. MINERALS\VITAMINS [Concomitant]
     Active Substance: MINERALS\VITAMINS
  3. ESTRADIOL [Concomitant]
     Active Substance: ESTRADIOL
  4. PROZAC [Concomitant]
     Active Substance: FLUOXETINE HYDROCHLORIDE
     Dosage: UNK
     Dates: start: 202209
  5. PROGESTERONE [Concomitant]
     Active Substance: PROGESTERONE

REACTIONS (2)
  - Exposure during pregnancy [Not Recovered/Not Resolved]
  - Progesterone decreased [Unknown]

NARRATIVE: CASE EVENT DATE: 20230101
